FAERS Safety Report 4523874-2 (Version None)
Quarter: 2004Q4

REPORT INFORMATION
  Report Type: 
  Country: None (occurrence: None)
  Receive Date: 20041210
  Receipt Date: 20041130
  Transmission Date: 20050328
  Serious: Yes (Other)
  Sender: FDA-Public Use
  Company Number: PHEH2004US12911

PATIENT
  Age: 42 Year
  Sex: Female
  Weight: 140 kg

DRUGS (5)
  1. ZELNORM [Suspect]
     Indication: IRRITABLE BOWEL SYNDROME
     Dosage: 6 MG, BID
     Route: 048
     Dates: start: 20040701, end: 20041029
  2. KEFLEX [Suspect]
     Indication: URINARY TRACT INFECTION
  3. BACTRIM [Suspect]
     Indication: URINARY TRACT INFECTION
  4. PROTONIX [Concomitant]
  5. PROZAC [Concomitant]

REACTIONS (7)
  - ABDOMINAL PAIN [None]
  - ALANINE AMINOTRANSFERASE INCREASED [None]
  - ASPARTATE AMINOTRANSFERASE INCREASED [None]
  - BLOOD ALKALINE PHOSPHATASE INCREASED [None]
  - DRUG INTERACTION [None]
  - HEPATIC ENZYME INCREASED [None]
  - URINARY TRACT INFECTION [None]
